FAERS Safety Report 10192615 (Version 1)
Quarter: 2014Q2

REPORT INFORMATION
  Report Type: Spontaneous
  Country: RO (occurrence: RO)
  Receive Date: 20140523
  Receipt Date: 20140523
  Transmission Date: 20141212
  Serious: Yes (Hospitalization, Other)
  Sender: FDA-Public Use
  Company Number: RO-BAYER-2014-071541

PATIENT
  Age: 37 Year
  Sex: Male

DRUGS (2)
  1. CIPROFLOXACIN [Suspect]
     Indication: URINARY TRACT INFECTION
  2. MESALAMINE [Concomitant]
     Indication: RECTAL HAEMORRHAGE

REACTIONS (6)
  - Clostridium difficile colitis [Recovering/Resolving]
  - Colitis ulcerative [Recovering/Resolving]
  - Pyrexia [Recovering/Resolving]
  - Diarrhoea [Recovering/Resolving]
  - Abdominal distension [Recovering/Resolving]
  - Rectal haemorrhage [Recovering/Resolving]
